FAERS Safety Report 21269471 (Version 1)
Quarter: 2022Q3

REPORT INFORMATION
  Report Type: Spontaneous
  Country: US (occurrence: None)
  Receive Date: 20220829
  Receipt Date: 20220829
  Transmission Date: 20221027
  Serious: No
  Sender: FDA-Public Use
  Company Number: None

PATIENT
  Age: 37 Year
  Sex: Female
  Weight: 61.65 kg

DRUGS (5)
  1. DEXTROAMPHET SACCHARAT, AMPHET ASPARTATE, DEXTROAMPHET SULFATE AND AMP [Suspect]
     Active Substance: AMPHETAMINE ASPARTATE\AMPHETAMINE SULFATE\DEXTROAMPHETAMINE SACCHARATE\DEXTROAMPHETAMINE SULFATE
     Indication: Attention deficit hyperactivity disorder
     Dosage: OTHER QUANTITY : 60 TABLET(S);?FREQUENCY : TWICE A DAY;?
     Route: 048
     Dates: start: 20220823, end: 20220829
  2. FLUTICASONE [Concomitant]
     Active Substance: FLUTICASONE
  3. LORATADINE [Concomitant]
     Active Substance: LORATADINE
  4. VITAMIN D [Concomitant]
     Active Substance: VITAMIN D NOS
  5. MULTIVITAMIN ADULT [Concomitant]

REACTIONS (9)
  - Product substitution issue [None]
  - Drug ineffective [None]
  - Disturbance in attention [None]
  - Memory impairment [None]
  - Depressed mood [None]
  - Depressed mood [None]
  - Dissociation [None]
  - Malaise [None]
  - Product colour issue [None]

NARRATIVE: CASE EVENT DATE: 20220823
